FAERS Safety Report 20988736 (Version 1)
Quarter: 2022Q2

REPORT INFORMATION
  Report Type: Spontaneous
  Country: US (occurrence: None)
  Receive Date: 20220621
  Receipt Date: 20220621
  Transmission Date: 20220720
  Serious: No
  Sender: FDA-Public Use
  Company Number: 2022A225261

PATIENT
  Sex: Female
  Weight: 64.9 kg

DRUGS (1)
  1. TEZSPIRE [Suspect]
     Active Substance: TEZEPELUMAB-EKKO
     Indication: Asthma
     Route: 058
     Dates: start: 20220129

REACTIONS (4)
  - Visual impairment [Unknown]
  - Vision blurred [Unknown]
  - Secretion discharge [Unknown]
  - Paranasal sinus discomfort [Unknown]
